FAERS Safety Report 5520140-3 (Version None)
Quarter: 2007Q4

REPORT INFORMATION
  Report Type: 
  Country: None (occurrence: None)
  Receive Date: 20071116
  Receipt Date: 20071113
  Transmission Date: 20080405
  Serious: Yes (Life-Threatening, Hospitalization)
  Sender: FDA-Public Use
  Company Number: DE-GILEAD-2007-0014343

PATIENT
  Age: 50 Year
  Sex: Male
  Weight: 75 kg

DRUGS (4)
  1. TRUVADA [Suspect]
     Indication: HIV INFECTION
     Route: 048
     Dates: start: 20070928, end: 20071026
  2. THALIDOMID [Suspect]
     Indication: CASTLEMAN'S DISEASE
     Route: 048
     Dates: start: 20070501
  3. INNOHEP [Concomitant]
     Indication: PULMONARY EMBOLISM
     Route: 058
     Dates: start: 20070601
  4. MOXIFLOXACIN HCL [Concomitant]
     Indication: INFECTION
     Route: 048
     Dates: start: 20071017, end: 20071023

REACTIONS (1)
  - RENAL FAILURE ACUTE [None]
